FAERS Safety Report 7101760-1 (Version None)
Quarter: 2010Q4

REPORT INFORMATION
  Report Type: 
  Country: None (occurrence: None)
  Receive Date: 20101115
  Receipt Date: 20101103
  Transmission Date: 20110411
  Serious: Yes (Hospitalization)
  Sender: FDA-Public Use
  Company Number: IT-BAYER-201045403GPV

PATIENT
  Age: 78 Year
  Sex: Female

DRUGS (3)
  1. NEXAVAR [Suspect]
     Indication: HEPATIC NEOPLASM MALIGNANT NON-RESECTABLE
     Route: 048
     Dates: start: 20100625, end: 20100725
  2. LASIX [Suspect]
     Route: 048
     Dates: start: 20100625, end: 20100725
  3. PRITORPLUS [Concomitant]
     Route: 048

REACTIONS (6)
  - COMA [None]
  - DRY SKIN [None]
  - HYPONATRAEMIA [None]
  - MUCOSAL DRYNESS [None]
  - PYREXIA [None]
  - VIITH NERVE PARALYSIS [None]
